FAERS Safety Report 9839441 (Version 1)
Quarter: 2014Q1

REPORT INFORMATION
  Report Type: Report from Study
  Country: AT (occurrence: AT)
  Receive Date: 20140124
  Receipt Date: 20140124
  Transmission Date: 20141002
  Serious: Yes (Death)
  Sender: FDA-Public Use
  Company Number: AT-ROCHE-1337728

PATIENT
  Age: 60 Year
  Sex: Female
  Weight: 60 kg

DRUGS (8)
  1. RITUXIMAB [Suspect]
     Indication: B-CELL LYMPHOMA
     Dosage: MABTHERA IN COMBINATION WITH CHOP VII
     Route: 042
     Dates: start: 20001129
  2. RITUXIMAB [Suspect]
     Indication: LYMPHOPLASMACYTOID LYMPHOMA/IMMUNOCYTOMA
  3. MEXALEN [Concomitant]
     Route: 048
     Dates: start: 20001129
  4. ADRIBLASTIN [Concomitant]
     Route: 065
     Dates: start: 20001129
  5. SOLU-DACORTIN [Concomitant]
     Route: 065
  6. ERYTHROCYTE CONCENTRATE [Concomitant]
     Route: 065
  7. VINCRISTINE [Concomitant]
  8. ENDOXAN [Concomitant]

REACTIONS (1)
  - Death [Fatal]
